FAERS Safety Report 23977860 (Version 1)
Quarter: 2024Q2

REPORT INFORMATION
  Report Type: Spontaneous
  Country: IE (occurrence: None)
  Receive Date: 20240614
  Receipt Date: 20240614
  Transmission Date: 20240716
  Serious: Yes (Death)
  Sender: FDA-Public Use
  Company Number: 2024A138347

PATIENT
  Sex: Female

DRUGS (1)
  1. SEROQUEL [Suspect]
     Active Substance: QUETIAPINE FUMARATE
     Indication: Agitation

REACTIONS (4)
  - Agitation [Fatal]
  - General physical health deterioration [Fatal]
  - Product monitoring error [Fatal]
  - Off label use [Fatal]

NARRATIVE: CASE EVENT DATE: 20221028
